FAERS Safety Report 17049456 (Version 1)
Quarter: 2019Q4

REPORT INFORMATION
  Report Type: Spontaneous
  Country: US (occurrence: US)
  Receive Date: 20191119
  Receipt Date: 20191119
  Transmission Date: 20200122
  Serious: Yes (Life-Threatening, Hospitalization)
  Sender: FDA-Public Use
  Company Number: US-MYLANLABS-2019M1112047

PATIENT
  Age: 29 Year
  Sex: Female

DRUGS (15)
  1. MAGNESIUM [Suspect]
     Active Substance: MAGNESIUM
     Indication: DRUG THERAPY
     Dosage: CONTINUOUS IV; TARGETED THERAPY
     Route: 042
  2. PYRIDOXINE [Suspect]
     Active Substance: PYRIDOXINE
     Indication: DRUG THERAPY
     Dosage: TARGETED THERAPY
     Route: 065
  3. LEVETIRACETAM. [Suspect]
     Active Substance: LEVETIRACETAM
     Indication: STATUS EPILEPTICUS
     Dosage: 750 MILLIGRAM, BID
     Route: 048
  4. CLOBAZAM. [Suspect]
     Active Substance: CLOBAZAM
     Indication: EPILEPSY
     Dosage: TARGETED THERAPY
     Route: 048
  5. KETAMINE [Suspect]
     Active Substance: KETAMINE
     Indication: STATUS EPILEPTICUS
     Dosage: CONTINUOUS IV THERAPY
     Route: 042
  6. LORAZEPAM. [Suspect]
     Active Substance: LORAZEPAM
     Indication: STATUS EPILEPTICUS
     Dosage: 2 MILLIGRAM
     Route: 042
  7. LEVETIRACETAM. [Suspect]
     Active Substance: LEVETIRACETAM
     Indication: STATUS EPILEPTICUS
     Dosage: 2000 MILLIGRAM
     Route: 042
  8. METHYLPREDNISOLONE. [Suspect]
     Active Substance: METHYLPREDNISOLONE
     Indication: DRUG THERAPY
     Dosage: TARGETED THERAPY
     Route: 042
  9. COENZYME Q10 [Suspect]
     Active Substance: UBIDECARENONE
     Indication: PRODUCT USED FOR UNKNOWN INDICATION
     Dosage: 100 MILLIGRAM, BID
     Route: 065
  10. LACOSAMIDE. [Suspect]
     Active Substance: LACOSAMIDE
     Indication: EPILEPSY
     Dosage: TARGETED THERAPY
     Route: 048
  11. LEVOCARNITINE. [Suspect]
     Active Substance: LEVOCARNITINE
     Indication: DRUG THERAPY
     Dosage: TARGETED THERAPY
     Route: 065
  12. L-ARGININE                         /00126101/ [Suspect]
     Active Substance: ARGININE
     Indication: DRUG THERAPY
     Dosage: 30 MILLIGRAM, QD
     Route: 042
  13. AMANTADINE. [Suspect]
     Active Substance: AMANTADINE HYDROCHLORIDE
     Indication: PRODUCT USED FOR UNKNOWN INDICATION
     Dosage: 100 MILLIGRAM, BID
     Route: 065
  14. MIDAZOLAM [Suspect]
     Active Substance: MIDAZOLAM HYDROCHLORIDE
     Indication: STATUS EPILEPTICUS
     Dosage: CONTINUOUS IV THERAPY
     Route: 042
  15. PHENYTOIN. [Suspect]
     Active Substance: PHENYTOIN
     Indication: EPILEPSY
     Dosage: TARGETED THERAPY
     Route: 048

REACTIONS (2)
  - Drug ineffective [Unknown]
  - Maternal exposure during pregnancy [Unknown]
